FAERS Safety Report 14554768 (Version 1)
Quarter: 2018Q1

REPORT INFORMATION
  Report Type: Spontaneous
  Country: US (occurrence: US)
  Receive Date: 20180220
  Receipt Date: 20180220
  Transmission Date: 20180509
  Serious: No
  Sender: FDA-Public Use
  Company Number: PHEH2018US006331

PATIENT
  Age: 83 Year
  Sex: Female

DRUGS (3)
  1. LISINOPRIL TABLETS [Suspect]
     Active Substance: LISINOPRIL
     Indication: PRODUCT USED FOR UNKNOWN INDICATION
     Dosage: 10 MG, UNK
     Route: 048
  2. LISINOPRIL TABLETS [Suspect]
     Active Substance: LISINOPRIL
     Dosage: 30 MG, UNK
     Route: 048
  3. LISINOPRIL TABLETS [Suspect]
     Active Substance: LISINOPRIL
     Dosage: 20 MG, UNK
     Route: 048

REACTIONS (2)
  - Nasopharyngitis [Unknown]
  - Dyspnoea [Unknown]
